FAERS Safety Report 21959767 (Version 2)
Quarter: 2023Q1

REPORT INFORMATION
  Report Type: Other
  Country: None (occurrence: US)
  Receive Date: 20230206
  Receipt Date: 20230302
  Transmission Date: 20230418
  Serious: Yes (Life-Threatening, Hospitalization)
  Sender: FDA-Public Use
  Company Number: US-California Department of Public Health-2137574

PATIENT
  Age: 1 Month
  Sex: Female
  Weight: 5.6 kg

DRUGS (5)
  1. BABYBIG [Suspect]
     Active Substance: HUMAN BOTULINUM NEUROTOXIN A/B IMMUNE GLOBULIN
     Indication: Botulism
     Route: 041
     Dates: start: 20230118, end: 20230119
  2. Poly-vi-sol multivitamin [Concomitant]
     Route: 050
     Dates: start: 202301
  3. LACTATED RINGERS AND DEXTROSE SOLUTION [Concomitant]
     Active Substance: CALCIUM CHLORIDE\DEXTROSE\POTASSIUM CHLORIDE\SODIUM CHLORIDE\SODIUM LACTATE
     Route: 042
     Dates: start: 202301
  4. FENTANYL [Concomitant]
     Active Substance: FENTANYL
     Route: 041
     Dates: start: 202301, end: 202301
  5. DEXMEDETOMIDINE [Concomitant]
     Active Substance: DEXMEDETOMIDINE
     Route: 041
     Dates: start: 202301, end: 202301

REACTIONS (1)
  - Respiratory arrest [Recovered/Resolved]

NARRATIVE: CASE EVENT DATE: 20230122
